FAERS Safety Report 17117571 (Version 1)
Quarter: 2019Q4

REPORT INFORMATION
  Report Type: Spontaneous
  Country: US (occurrence: US)
  Receive Date: 20191205
  Receipt Date: 20191205
  Transmission Date: 20200122
  Serious: No
  Sender: FDA-Public Use
  Company Number: US-NEOPHARMA INC-000256

PATIENT
  Age: 54 Year

DRUGS (5)
  1. AUGMENTIN [Suspect]
     Active Substance: AMOXICILLIN\CLAVULANATE POTASSIUM
     Indication: PRODUCT USED FOR UNKNOWN INDICATION
  2. PREGABALIN. [Suspect]
     Active Substance: PREGABALIN
     Indication: MONONEUROPATHY
     Dosage: TAKE 1 CAPSULE 3 TIMES DAILY.
     Route: 048
     Dates: start: 20190923
  3. PREGABALIN. [Suspect]
     Active Substance: PREGABALIN
     Indication: SMALL FIBRE NEUROPATHY
     Dosage: TAKE 1 CAPSULE 3 TIMES DAILY.
     Route: 048
     Dates: start: 20190923
  4. PREGABALIN. [Suspect]
     Active Substance: PREGABALIN
     Indication: NEURALGIA
     Dosage: TAKE 1 CAPSULE 3 TIMES DAILY.
     Route: 048
     Dates: start: 20190923
  5. PREGABALIN. [Suspect]
     Active Substance: PREGABALIN
     Indication: POLYNEUROPATHY
     Dosage: TAKE 1 CAPSULE 3 TIMES DAILY.
     Route: 048
     Dates: start: 20190923

REACTIONS (1)
  - Drug hypersensitivity [Unknown]
